FAERS Safety Report 6898127-8 (Version None)
Quarter: 2010Q3

REPORT INFORMATION
  Report Type: 
  Country: None (occurrence: None)
  Receive Date: 20100802
  Receipt Date: 20070910
  Transmission Date: 20110219
  Serious: No
  Sender: FDA-Public Use
  Company Number: US-PFIZER INC-2007059206

PATIENT
  Sex: Female
  Weight: 77.3 kg

DRUGS (6)
  1. LYRICA [Suspect]
     Indication: HERPES ZOSTER
     Dates: start: 20070709
  2. PRILOSEC [Concomitant]
  3. METFORMIN/PIOGLITAZONE [Concomitant]
  4. AVALIDE [Concomitant]
  5. ADVIL LIQUI-GELS [Concomitant]
  6. NEXIUM [Concomitant]

REACTIONS (1)
  - SLEEP DISORDER [None]
